FAERS Safety Report 9028831 (Version 2)
Quarter: 2013Q3

REPORT INFORMATION
  Report Type: Spontaneous
  Country: US (occurrence: US)
  Receive Date: 20130124
  Receipt Date: 20130730
  Transmission Date: 20140515
  Serious: Yes (Other)
  Sender: FDA-Public Use
  Company Number: US-BRISTOL-MYERS SQUIBB COMPANY-17286345

PATIENT
  Age: 47 Year
  Sex: Male
  Weight: 118.82 kg

DRUGS (25)
  1. ABATACEPT SUBQ INJECTION 125MG/ML [Suspect]
     Indication: RHEUMATOID ARTHRITIS
     Dosage: 1DF=125MG/1ML?INTER-JUL12,RESTARTED AGAIN AND INTERUPTED AGAIN
     Route: 058
     Dates: start: 201108
  2. PLAQUENIL [Concomitant]
  3. PREDNISONE ACETATE [Concomitant]
  4. KLONOPIN [Concomitant]
     Dosage: TAB
  5. XANAX [Concomitant]
     Dosage: FORMULATION-XANAX TAB 0.25MG
  6. DEMEROL [Concomitant]
     Dosage: FORMULATION-DEMEROL TAB 100MG
  7. AMBIEN [Concomitant]
     Dosage: FORMULATION-AMBIEN TAB 10MG
  8. SENOKOT [Concomitant]
     Dosage: FORMULATION-SENOKOT TAB 8.6MG
  9. VICODIN [Concomitant]
     Dosage: FORMULATION-VICODIN TAB 5-500MG
  10. DILAUDID [Concomitant]
     Dosage: FORMULATION-DILAUDID TAB 2MG
  11. KETOROLAC [Concomitant]
     Dosage: FORMULATION-KETOROLAC TAB 10MG
  12. TRAZODONE HCL [Concomitant]
     Dosage: FORMULATION-TRAZODONE TAB 100MG
  13. GABAPENTIN [Concomitant]
     Dosage: FORMULATION-GABAPENTIN CAP 300MG
  14. FLUOXETINE [Concomitant]
     Dosage: FORMULATION-FLUOXETINE CAP 10MG
  15. LABETALOL [Concomitant]
     Dosage: FORMULATION-LABETAOLOL TAB 300MG
  16. VITAMIN D [Concomitant]
     Dosage: VITAMIN D CAP 50000 UNITS
  17. BUPROPION [Concomitant]
     Dosage: FORMULATION-BUPROPION TAB 150MG
  18. COLACE [Concomitant]
     Dosage: FORMULATION-COLACE CAP 50MG
  19. PERCOCET [Concomitant]
  20. OXYCONTIN [Concomitant]
     Dosage: FORMULATION-OXYCONTIN TAB 10MG
  21. OMEPRAZOLE [Concomitant]
     Dosage: CAP
  22. FOLBIC [Concomitant]
     Dosage: TAB
  23. TESTIM [Concomitant]
     Dosage: GEL 1%
  24. PROCHLORPERAZINE [Concomitant]
     Dosage: TAB
  25. PREDNISONE [Concomitant]

REACTIONS (3)
  - Arthropathy [Unknown]
  - Headache [Unknown]
  - Drug ineffective [Unknown]
